FAERS Safety Report 13368234 (Version 2)
Quarter: 2017Q2

REPORT INFORMATION
  Report Type: Spontaneous
  Country: US (occurrence: US)
  Receive Date: 20170324
  Receipt Date: 20170530
  Transmission Date: 20170830
  Serious: No
  Sender: FDA-Public Use
  Company Number: US-009507513-1703USA000358

PATIENT
  Age: 35 Year
  Sex: Female
  Weight: 66.67 kg

DRUGS (1)
  1. NEXPLANON [Suspect]
     Active Substance: ETONOGESTREL
     Indication: CONTRACEPTION
     Dosage: 68 MG/ 1 ROD EVERY 3 YEARS
     Route: 059
     Dates: start: 20161121

REACTIONS (3)
  - Premenstrual syndrome [Not Recovered/Not Resolved]
  - Vaginal haemorrhage [Not Recovered/Not Resolved]
  - Menstruation delayed [Recovered/Resolved]

NARRATIVE: CASE EVENT DATE: 201612
